FAERS Safety Report 18471786 (Version 2)
Quarter: 2020Q4

REPORT INFORMATION
  Report Type: Spontaneous
  Country: FR (occurrence: FR)
  Receive Date: 20201105
  Receipt Date: 20201115
  Transmission Date: 20210114
  Serious: Yes (Hospitalization, Other)
  Sender: FDA-Public Use
  Company Number: FR-AUROBINDO-AUR-APL-2020-054353

PATIENT
  Age: 85 Year
  Sex: Male

DRUGS (1)
  1. AMIODARONE [Suspect]
     Active Substance: AMIODARONE
     Indication: ATRIAL FIBRILLATION
     Dosage: 200 MILLIGRAM, ONCE A DAY
     Route: 065

REACTIONS (7)
  - Cerebellar syndrome [Recovered/Resolved]
  - Dysphagia [Recovered/Resolved]
  - Sarcopenia [Not Recovered/Not Resolved]
  - Dysarthria [Recovered/Resolved]
  - Neurotoxicity [Not Recovered/Not Resolved]
  - Loss of personal independence in daily activities [Recovered/Resolved]
  - Cerebellar ataxia [Recovered/Resolved]
